FAERS Safety Report 10666408 (Version 2)
Quarter: 2014Q4

REPORT INFORMATION
  Report Type: Spontaneous
  Country: US (occurrence: US)
  Receive Date: 20141220
  Receipt Date: 20141220
  Transmission Date: 20150529
  Serious: No
  Sender: FDA-Public Use
  Company Number: US-BAUSCH-SYM-2014-19030

PATIENT
  Age: 54 Year
  Sex: Female

DRUGS (4)
  1. XENAZINE [Suspect]
     Active Substance: TETRABENAZINE
     Dosage: 1 TABLET, ONCE DAILY IN THE MORNING
     Route: 048
     Dates: start: 20140319, end: 20140416
  2. XENAZINE [Suspect]
     Active Substance: TETRABENAZINE
     Indication: HUNTINGTON^S DISEASE
     Dosage: 1 TABLET, TWICE ON 1 DAY
     Route: 048
     Dates: start: 20140318, end: 20140318
  3. XENAZINE [Suspect]
     Active Substance: TETRABENAZINE
     Dosage: 1 TABLET, ONCE DAILY
     Route: 048
     Dates: start: 20140422, end: 20140428
  4. XENAZINE [Suspect]
     Active Substance: TETRABENAZINE
     Dosage: 1 TABLET, TWICE DAILY
     Route: 048
     Dates: start: 20140429

REACTIONS (4)
  - Nausea [Recovering/Resolving]
  - Vomiting [Recovering/Resolving]
  - Insomnia [Unknown]
  - Contusion [Unknown]

NARRATIVE: CASE EVENT DATE: 20140321
